FAERS Safety Report 20872198 (Version 1)
Quarter: 2022Q2

REPORT INFORMATION
  Report Type: Spontaneous
  Country: US (occurrence: None)
  Receive Date: 20220525
  Receipt Date: 20220525
  Transmission Date: 20220720
  Serious: Yes (Other)
  Sender: FDA-Public Use
  Company Number: 2022A192299

PATIENT
  Age: 59 Year
  Sex: Female

DRUGS (1)
  1. TEZSPIRE [Suspect]
     Active Substance: TEZEPELUMAB-EKKO
     Indication: Asthma
     Dosage: EVERY FOUR WEEKS
     Route: 058

REACTIONS (4)
  - Asthenia [Recovering/Resolving]
  - Headache [Recovering/Resolving]
  - Dyskinesia [Recovering/Resolving]
  - Fibromyalgia [Recovering/Resolving]
